FAERS Safety Report 8805393 (Version 1)
Quarter: 2012Q4

REPORT INFORMATION
  Report Type: 
  Country: PH (occurrence: PH)
  Receive Date: 20120924
  Receipt Date: 20120924
  Transmission Date: 20130627
  Serious: Yes (Death, Hospitalization)
  Sender: FDA-Public Use
  Company Number: PHHO2006PH01505

PATIENT
  Sex: Male

DRUGS (1)
  1. GLIVEC [Suspect]
     Indication: CHRONIC MYELOID LEUKAEMIA
     Dosage: 300 mg, QD
     Route: 048
     Dates: start: 20040426, end: 200511

REACTIONS (3)
  - Cardiac arrest [Fatal]
  - Cardiac failure congestive [Unknown]
  - Pneumonia [Unknown]
